FAERS Safety Report 6866451-0 (Version None)
Quarter: 2010Q2

REPORT INFORMATION
  Report Type: 
  Country: None (occurrence: None)
  Receive Date: 20100601
  Receipt Date: 20100204
  Transmission Date: 20101027
  Serious: No
  Sender: FDA-Public Use
  Company Number: MC2010000044

PATIENT

DRUGS (4)
  1. CLEVIPREX [Suspect]
     Indication: HYPERTENSION
  2. CLONIDINE [Concomitant]
  3. LOPRESSOR [Concomitant]
  4. BETA BLOCKER DRIP [Concomitant]

REACTIONS (1)
  - BLOOD PRESSURE INADEQUATELY CONTROLLED [None]
